FAERS Safety Report 7250505-3 (Version None)
Quarter: 2011Q1

REPORT INFORMATION
  Report Type: 
  Country: None (occurrence: None)
  Receive Date: 20110128
  Receipt Date: 20110118
  Transmission Date: 20110831
  Serious: Yes (Other)
  Sender: FDA-Public Use
  Company Number: PHHY2011US04547

PATIENT
  Sex: Female

DRUGS (1)
  1. RECLAST [Suspect]
     Dosage: YEARLY

REACTIONS (9)
  - SKIN EXFOLIATION [None]
  - DIZZINESS [None]
  - OSTEOARTHRITIS [None]
  - PAIN IN EXTREMITY [None]
  - LOCAL SWELLING [None]
  - ERYTHEMA [None]
  - FATIGUE [None]
  - FINGER DEFORMITY [None]
  - NAUSEA [None]
